FAERS Safety Report 10186559 (Version 1)
Quarter: 2014Q2

REPORT INFORMATION
  Report Type: Spontaneous
  Country: GB (occurrence: GB)
  Receive Date: 20140521
  Receipt Date: 20140521
  Transmission Date: 20141212
  Serious: Yes (Other)
  Sender: FDA-Public Use
  Company Number: GB-MYLANLABS-2014S1010721

PATIENT
  Age: 60 Year
  Sex: Male
  Weight: 84 kg

DRUGS (10)
  1. PIOGLITAZONE [Suspect]
     Indication: DIABETES MELLITUS
     Route: 048
     Dates: start: 20081118, end: 20140429
  2. ASPIRIN [Concomitant]
  3. BENDROFLUMETHIAZIDE [Concomitant]
  4. BISOPROLOL [Concomitant]
  5. CITALOPRAM [Concomitant]
  6. METFORMIN [Concomitant]
  7. NOVOMIX [Concomitant]
  8. PREGABALIN [Concomitant]
  9. RAMIPRIL [Concomitant]
  10. SIMVASTATIN [Concomitant]

REACTIONS (2)
  - Bladder adenocarcinoma stage unspecified [Not Recovered/Not Resolved]
  - Transitional cell carcinoma [Not Recovered/Not Resolved]
